FAERS Safety Report 14341780 (Version 4)
Quarter: 2018Q1

REPORT INFORMATION
  Report Type: Report from Study
  Country: DE (occurrence: DE)
  Receive Date: 20180102
  Receipt Date: 20180305
  Transmission Date: 20180509
  Serious: Yes (Hospitalization)
  Sender: FDA-Public Use
  Company Number: DE-ROCHE-2048640

PATIENT
  Age: 65 Year
  Sex: Female
  Weight: 58 kg

DRUGS (10)
  1. ATEZOLIZUMAB. [Suspect]
     Active Substance: ATEZOLIZUMAB
     Indication: NON-SMALL CELL LUNG CANCER STAGE IV
     Dosage: MOST RECENT DOSE PRIOR TO EVENT ONSET ON 05/DEC/2017 AT 15:35
     Route: 042
     Dates: start: 20170710
  2. CIPRAMIL [Concomitant]
     Active Substance: CITALOPRAM HYDROBROMIDE
     Indication: RESTLESSNESS
     Route: 065
     Dates: start: 20170710
  3. IBUPROFEN. [Concomitant]
     Active Substance: IBUPROFEN
     Indication: MUSCULOSKELETAL PAIN
  4. IBUPROFEN. [Concomitant]
     Active Substance: IBUPROFEN
     Indication: NECK PAIN
     Route: 065
     Dates: start: 20171113
  5. L-THYROX [Concomitant]
     Active Substance: LEVOTHYROXINE SODIUM
     Indication: PROPHYLAXIS
  6. JODID [Concomitant]
     Active Substance: IODINE
     Indication: PROPHYLAXIS
  7. NICOTINELL [Concomitant]
     Active Substance: NICOTINE
     Dosage: SMOKING WEANING
     Route: 065
  8. PANTOZOL [Concomitant]
     Active Substance: PANTOPRAZOLE SODIUM
     Indication: PROPHYLAXIS
     Route: 065
     Dates: start: 20170615
  9. ACONIT [Concomitant]
     Indication: NECK PAIN
     Route: 065
     Dates: start: 20170710
  10. TOREM [Concomitant]
     Active Substance: TORSEMIDE
     Indication: OEDEMA PERIPHERAL
     Route: 065
     Dates: start: 20171206

REACTIONS (1)
  - Arthralgia [Not Recovered/Not Resolved]

NARRATIVE: CASE EVENT DATE: 20171227
